FAERS Safety Report 11467404 (Version 1)
Quarter: 2015Q3

REPORT INFORMATION
  Report Type: Spontaneous
  Country: JP (occurrence: JP)
  Receive Date: 20150908
  Receipt Date: 20150908
  Transmission Date: 20151125
  Serious: No
  Sender: FDA-Public Use
  Company Number: JP-LUPIN PHARMACEUTICALS INC.-2015-02157

PATIENT
  Age: 84 Year
  Sex: Male

DRUGS (9)
  1. QUETIAPINE TABLET 25MG ^AMEL^ [Suspect]
     Active Substance: QUETIAPINE
     Dosage: 1 DOSAGE FORM
     Route: 048
     Dates: end: 20150616
  2. FOLIAMIN TABLET [Concomitant]
     Indication: PRODUCT USED FOR UNKNOWN INDICATION
     Dosage: 1 DOSAGE FORMS
     Route: 048
     Dates: start: 20150609, end: 20150623
  3. CEFCAPENE PIVOXIL HYDROCHLORIDE TABLET 100MG [Suspect]
     Active Substance: CEFCAPENE PIVOXIL HYDROCHLORIDE
     Indication: PRODUCT USED FOR UNKNOWN INDICATION
     Dosage: 3 DOSAGE FORMS
     Route: 048
     Dates: start: 20150607, end: 20150617
  4. CALONAL TABLET 300 MG [Concomitant]
     Indication: PRODUCT USED FOR UNKNOWN INDICATION
     Dosage: 2 DOSAGE FORMS
     Route: 048
     Dates: start: 20150609
  5. QUETIAPINE TABLET 25MG ^AMEL^ [Suspect]
     Active Substance: QUETIAPINE
     Dosage: 2 DOSAGE FORM
     Route: 048
     Dates: end: 20150701
  6. QUETIAPINE TABLET 25MG ^AMEL^ [Suspect]
     Active Substance: QUETIAPINE
     Indication: SCHIZOPHRENIA
     Dosage: 0.5 DOSAGE FORM
     Route: 048
     Dates: start: 20150609, end: 20150611
  7. REBAMIPIDE TABLET 100 MG [Suspect]
     Active Substance: REBAMIPIDE
     Indication: PRODUCT USED FOR UNKNOWN INDICATION
     Dosage: 2 DOSAGE FORMS
     Route: 048
     Dates: start: 20150609
  8. LUNESTA TABLET 1MG [Concomitant]
     Indication: PRODUCT USED FOR UNKNOWN INDICATION
     Dosage: 1 DOSAGE FORMS
     Route: 048
     Dates: start: 20150609
  9. VITAMEDIN COMBINATION CAPSULES B25 [Concomitant]
     Indication: PRODUCT USED FOR UNKNOWN INDICATION
     Dosage: 2 DOSAGE FORMS
     Route: 048
     Dates: start: 20150609, end: 20150623

REACTIONS (1)
  - White blood cell count decreased [Unknown]

NARRATIVE: CASE EVENT DATE: 20150609
